FAERS Safety Report 12133234 (Version 2)
Quarter: 2016Q1

REPORT INFORMATION
  Report Type: Spontaneous
  Country: MX (occurrence: MX)
  Receive Date: 20160301
  Receipt Date: 20160324
  Transmission Date: 20160526
  Serious: Yes (Hospitalization, Other)
  Sender: FDA-Public Use
  Company Number: MX-ALEXION PHARMACEUTICALS INC-A201600613

PATIENT
  Age: 32 Year
  Sex: Female

DRUGS (2)
  1. SOLIRIS [Suspect]
     Active Substance: ECULIZUMAB
     Indication: PAROXYSMAL NOCTURNAL HAEMOGLOBINURIA
     Dosage: 900 MG, Q2W
     Route: 042
     Dates: start: 20140321
  2. SOLIRIS [Suspect]
     Active Substance: ECULIZUMAB
     Dosage: UNK
     Route: 042

REACTIONS (8)
  - Marrow hyperplasia [Unknown]
  - Bacteraemia [Unknown]
  - Exposure during pregnancy [Recovered/Resolved]
  - Haemolysis [Recovering/Resolving]
  - Pyrexia [Recovered/Resolved]
  - Dysplasia [Unknown]
  - Klebsiella infection [Unknown]
  - Septic shock [Unknown]

NARRATIVE: CASE EVENT DATE: 201404
